FAERS Safety Report 5403956-3 (Version None)
Quarter: 2007Q3

REPORT INFORMATION
  Report Type: 
  Country: None (occurrence: None)
  Receive Date: 20070802
  Receipt Date: 20070727
  Transmission Date: 20080115
  Serious: Yes (Other)
  Sender: FDA-Public Use
  Company Number: A0658252A

PATIENT
  Age: 62 Year
  Sex: Female
  Weight: 96.8 kg

DRUGS (13)
  1. REQUIP [Suspect]
     Indication: RESTLESS LEGS SYNDROME
     Dosage: 1MG AT NIGHT
     Route: 048
     Dates: start: 20061129, end: 20070608
  2. NEXIUM [Concomitant]
  3. COREG [Concomitant]
  4. BUMEX [Concomitant]
  5. ESTRACE [Concomitant]
  6. MOBIC [Concomitant]
  7. GLUCOPHAGE [Concomitant]
  8. BYETTA [Concomitant]
  9. TRICOR [Concomitant]
  10. ASPIRIN [Concomitant]
  11. FOLIC ACID [Concomitant]
  12. VITAMIN B6 [Concomitant]
  13. AMBIEN [Concomitant]

REACTIONS (1)
  - DEAFNESS [None]
